FAERS Safety Report 4491993-5 (Version None)
Quarter: 2004Q4

REPORT INFORMATION
  Report Type: 
  Country: None (occurrence: None)
  Receive Date: 20041101
  Receipt Date: 20041019
  Transmission Date: 20050328
  Serious: Yes (Other)
  Sender: FDA-Public Use
  Company Number: A03200402125

PATIENT
  Age: 85 Year
  Sex: Female

DRUGS (1)
  1. AMBIEN [Suspect]
     Indication: SOMNOLENCE
     Dosage: ORAL
     Route: 048

REACTIONS (6)
  - BLADDER DISORDER [None]
  - FALL [None]
  - LACERATION [None]
  - MEMORY IMPAIRMENT [None]
  - PAIN [None]
  - SPINAL FRACTURE [None]
